FAERS Safety Report 6492006-6 (Version None)
Quarter: 2009Q4

REPORT INFORMATION
  Report Type: 
  Country: None (occurrence: None)
  Receive Date: 20091208
  Receipt Date: 20091126
  Transmission Date: 20100525
  Serious: Yes (Death)
  Sender: FDA-Public Use
  Company Number: 2009AP004380

PATIENT
  Age: 87 Year
  Sex: Female

DRUGS (11)
  1. RISPERIDONE [Suspect]
  2. ROPINIROLE HYDROCHLORIDE [Concomitant]
     Dosage: 9 MG;  TAB; PO; QD
     Route: 048
  3. AMOXICILLIN TRIHYDRATE [Concomitant]
  4. ASPIRIN [Concomitant]
  5. CARBIMAZOLE (CARBIMAZOLE) [Concomitant]
  6. DIGOXIN [Concomitant]
  7. FUROSEMIDE [Concomitant]
  8. LACTOSE (LACTOSE) [Concomitant]
  9. CARBIDOPA (CARBIDOPA) [Concomitant]
  10. LEVODOPA (LEVODOPA) [Concomitant]
  11. SPARTEINE SULFATE (SPARTEINE SULFATE) [Concomitant]

REACTIONS (2)
  - MEDICATION ERROR [None]
  - WRONG DRUG ADMINISTERED [None]
